FAERS Safety Report 24079415 (Version 5)
Quarter: 2024Q4

REPORT INFORMATION
  Report Type: Spontaneous
  Country: US (occurrence: US)
  Receive Date: 20240711
  Receipt Date: 20241016
  Transmission Date: 20250115
  Serious: No
  Sender: PFIZER
  Company Number: US-PFIZER INC-202400208106

PATIENT
  Age: 18 Year
  Sex: Male

DRUGS (1)
  1. GENOTROPIN [Suspect]
     Active Substance: SOMATROPIN
     Dosage: 1.8 MG

REACTIONS (3)
  - Circumstance or information capable of leading to medication error [Unknown]
  - Device breakage [Unknown]
  - Device malfunction [Unknown]
